FAERS Safety Report 4408785-5 (Version None)
Quarter: 2004Q3

REPORT INFORMATION
  Report Type: 
  Country: None (occurrence: None)
  Receive Date: 20040727
  Receipt Date: 20040507
  Transmission Date: 20050211
  Serious: No
  Sender: FDA-Public Use
  Company Number: US-GLAXOSMITHKLINE-A0510034A

PATIENT
  Sex: Female

DRUGS (1)
  1. LEXIVA [Suspect]
     Indication: HIV INFECTION
     Route: 048

REACTIONS (1)
  - RASH [None]
